FAERS Safety Report 17673658 (Version 1)
Quarter: 2020Q2

REPORT INFORMATION
  Report Type: Report from Study
  Country: None (occurrence: DE)
  Receive Date: 20200416
  Receipt Date: 20200416
  Transmission Date: 20200714
  Serious: Yes (Hospitalization)
  Sender: FDA-Public Use
  Company Number: DE-ABBVIE-20K-062-3365734-00

PATIENT
  Sex: Male

DRUGS (1)
  1. LEVODOPA/CARBIDOPA [Suspect]
     Active Substance: CARBIDOPA\LEVODOPA
     Indication: PARKINSON^S DISEASE
     Dosage: MD 9 ML CRD 4 ML ED 1 ML
     Route: 050
     Dates: start: 20170907

REACTIONS (2)
  - General physical health deterioration [Not Recovered/Not Resolved]
  - Haematuria [Not Recovered/Not Resolved]
